FAERS Safety Report 18751004 (Version 2)
Quarter: 2021Q2

REPORT INFORMATION
  Report Type: Spontaneous
  Country: US (occurrence: US)
  Receive Date: 20210118
  Receipt Date: 20210421
  Transmission Date: 20210717
  Serious: No
  Sender: FDA-Public Use
  Company Number: US-SA-2021SA012453

PATIENT
  Age: 76 Year
  Sex: Male

DRUGS (1)
  1. DUPIXENT [Suspect]
     Active Substance: DUPILUMAB
     Indication: DERMATITIS ATOPIC
     Dosage: 300 MG, QOW
     Route: 058
     Dates: start: 20201202

REACTIONS (9)
  - Erythema [Unknown]
  - Skin fissures [Unknown]
  - Condition aggravated [Unknown]
  - Arthropathy [Unknown]
  - Dermatitis atopic [Unknown]
  - Injection site swelling [Recovered/Resolved]
  - Drug ineffective [Unknown]
  - Skin haemorrhage [Unknown]
  - Skin lesion [Recovered/Resolved]

NARRATIVE: CASE EVENT DATE: 202012
